FAERS Safety Report 16576443 (Version 1)
Quarter: 2019Q3

REPORT INFORMATION
  Report Type: Spontaneous
  Country: US (occurrence: US)
  Receive Date: 20190715
  Receipt Date: 20190715
  Transmission Date: 20191004
  Serious: No
  Sender: FDA-Public Use
  Company Number: None

PATIENT
  Age: 59 Year
  Sex: Female
  Weight: 67.5 kg

DRUGS (1)
  1. PREDNISONE 20 MG TAB ROX [Suspect]
     Active Substance: PREDNISONE
     Indication: SKIN DISORDER
     Dosage: ?          QUANTITY:10 TABLET(S);?
     Route: 048
     Dates: start: 20190712

REACTIONS (1)
  - Haematochezia [None]

NARRATIVE: CASE EVENT DATE: 20190715
